FAERS Safety Report 16480871 (Version 1)
Quarter: 2019Q2

REPORT INFORMATION
  Report Type: Spontaneous
  Country: US (occurrence: US)
  Receive Date: 20190626
  Receipt Date: 20190626
  Transmission Date: 20190711
  Serious: No
  Sender: FDA-Public Use
  Company Number: US-009507513-1906USA003300

PATIENT
  Age: 57 Year
  Sex: Male

DRUGS (3)
  1. METFORMIN HYDROCHLORIDE. [Concomitant]
     Active Substance: METFORMIN HYDROCHLORIDE
  2. PREGNYL [Suspect]
     Active Substance: CHORIOGONADOTROPIN ALFA
     Indication: OLIGOSPERMIA
     Dosage: STRENGTH: 2,000 USP UNITS, 3 TIMES A WEEK
     Route: 030
     Dates: start: 201903
  3. SIMVASTATIN. [Concomitant]
     Active Substance: SIMVASTATIN

REACTIONS (3)
  - Product dose omission [Unknown]
  - No adverse event [Unknown]
  - Product use in unapproved indication [Unknown]
